FAERS Safety Report 6241020-4 (Version None)
Quarter: 2009Q2

REPORT INFORMATION
  Report Type: 
  Country: None (occurrence: None)
  Receive Date: 20090623
  Receipt Date: 20090616
  Transmission Date: 20091009
  Serious: Yes (Other)
  Sender: FDA-Public Use
  Company Number: D0059273A

PATIENT
  Sex: Female
  Weight: 66 kg

DRUGS (11)
  1. VIANI FORTE [Suspect]
     Indication: ASTHMA
     Dosage: 550UG TWICE PER DAY
     Route: 055
  2. PULMICORT-100 [Concomitant]
     Indication: ASTHMA
     Dosage: 400UG TWICE PER DAY
     Route: 055
  3. PREDNISOLONE [Concomitant]
     Indication: ASTHMA
     Dosage: 25MG TWICE PER DAY
     Route: 048
  4. TERBUTALINE RETARD [Concomitant]
     Indication: ASTHMA
     Dosage: 7.5MG TWICE PER DAY
     Route: 048
  5. PROCORALAN [Concomitant]
     Route: 048
  6. UNKNOWN MEDICATION [Concomitant]
     Route: 065
  7. NEXIUM [Concomitant]
     Dosage: 20MG PER DAY
     Route: 048
  8. SINGULAIR [Concomitant]
     Dosage: 10MG PER DAY
     Route: 048
  9. MAGNESIUM SULFATE [Concomitant]
     Route: 048
  10. ALBUTEROL [Concomitant]
     Route: 065
  11. MAXALT [Concomitant]
     Route: 048

REACTIONS (3)
  - DELIVERY [None]
  - DRUG EXPOSURE DURING PREGNANCY [None]
  - HELLP SYNDROME [None]
